FAERS Safety Report 8015913-1 (Version None)
Quarter: 2011Q4

REPORT INFORMATION
  Report Type: 
  Country: None (occurrence: None)
  Receive Date: 20111228
  Receipt Date: 20111228
  Transmission Date: 20120403
  Serious: No
  Sender: FDA-Public Use
  Company Number: None

PATIENT
  Age: 47 Year
  Sex: Male
  Weight: 120.2032 kg

DRUGS (1)
  1. PANTOPRAZOLE [Suspect]
     Indication: BARRETT'S OESOPHAGUS
     Dosage: 40MG QD ORAL
     Route: 048
     Dates: start: 20111001, end: 20111201

REACTIONS (1)
  - TREATMENT FAILURE [None]
